FAERS Safety Report 6052766-5 (Version None)
Quarter: 2009Q1

REPORT INFORMATION
  Report Type: 
  Country: None (occurrence: None)
  Receive Date: 20090121
  Receipt Date: 20090108
  Transmission Date: 20090719
  Serious: Yes (Other)
  Sender: FDA-Public Use
  Company Number: 2009-189332-NL

PATIENT
  Age: 20 Year
  Sex: Female
  Weight: 61.2 kg

DRUGS (6)
  1. NUVARING [Suspect]
     Indication: CONTRACEPTION
     Dosage: 3 WEEKS IN/ 1 WEEK OUT
     Dates: start: 20081219
  2. NUVARING [Suspect]
     Indication: CONVULSION
     Dosage: 3 WEEKS IN/ 1 WEEK OUT
     Dates: start: 20081219
  3. TOPAMAX [Concomitant]
  4. TRILEPTAL [Concomitant]
  5. CLINDAMYCIN PHOSPHATE [Concomitant]
  6. ALBUTEROL ORAL INHALER [Concomitant]

REACTIONS (5)
  - BRONCHITIS [None]
  - CONTRACEPTIVE DEVICE COMPLICATION [None]
  - OFF LABEL USE [None]
  - PNEUMONIA [None]
  - VAGINAL HAEMORRHAGE [None]
